FAERS Safety Report 16431426 (Version 1)
Quarter: 2019Q2

REPORT INFORMATION
  Report Type: Spontaneous
  Country: SE (occurrence: SE)
  Receive Date: 20190614
  Receipt Date: 20190614
  Transmission Date: 20190711
  Serious: Yes (Other)
  Sender: FDA-Public Use
  Company Number: SE-TEVA-2019-SE-1061680

PATIENT
  Age: 82 Year
  Sex: Female

DRUGS (1)
  1. FENTANYL. [Suspect]
     Active Substance: FENTANYL
     Indication: PAIN
     Dosage: 50 1 PL. EVERY 3RD DAY
     Route: 065
     Dates: start: 20190405

REACTIONS (5)
  - Erythema [Recovered/Resolved]
  - Abdominal pain [Recovered/Resolved]
  - Pain in jaw [Recovered/Resolved]
  - Skin reaction [Recovered/Resolved]
  - Burning sensation [Recovered/Resolved]

NARRATIVE: CASE EVENT DATE: 2019
